FAERS Safety Report 20237536 (Version 11)
Quarter: 2025Q1

REPORT INFORMATION
  Report Type: Report from Study
  Country: CA (occurrence: CA)
  Receive Date: 20211228
  Receipt Date: 20250303
  Transmission Date: 20250408
  Serious: Yes (Other)
  Sender: BOEHRINGER INGELHEIM
  Company Number: CA-BoehringerIngelheim-2021-BI-121994

PATIENT
  Age: 65 Year
  Sex: Female

DRUGS (5)
  1. OFEV [Suspect]
     Active Substance: NINTEDANIB
     Indication: Interstitial lung disease
     Dates: start: 20210107, end: 202112
  2. OFEV [Suspect]
     Active Substance: NINTEDANIB
     Dates: start: 202112
  3. OFEV [Suspect]
     Active Substance: NINTEDANIB
     Dosage: 150 MG AM AND 100 MG PM FOR 2 WEEKS; 100MG QHS AND 150MG QAM
  4. OFEV [Suspect]
     Active Substance: NINTEDANIB
  5. MORPHINE [Suspect]
     Active Substance: MORPHINE
     Indication: Product used for unknown indication

REACTIONS (25)
  - Transient ischaemic attack [Recovered/Resolved]
  - Decreased appetite [Recovering/Resolving]
  - Oxygen saturation decreased [Not Recovered/Not Resolved]
  - Diabetes mellitus [Recovering/Resolving]
  - Diarrhoea [Recovering/Resolving]
  - Alopecia [Not Recovered/Not Resolved]
  - Abdominal pain upper [Recovering/Resolving]
  - Cough [Recovering/Resolving]
  - Diarrhoea [Recovering/Resolving]
  - Concussion [Recovering/Resolving]
  - Diarrhoea [Unknown]
  - Nausea [Recovering/Resolving]
  - Vomiting [Recovered/Resolved]
  - Product quality issue [Unknown]
  - Gastrointestinal disorder [Recovering/Resolving]
  - Abdominal pain [Recovering/Resolving]
  - Weight decreased [Recovering/Resolving]
  - Alopecia [Not Recovered/Not Resolved]
  - Malaise [Unknown]
  - Stress [Not Recovered/Not Resolved]
  - Abdominal pain upper [Recovering/Resolving]
  - Diarrhoea [Recovering/Resolving]
  - Dyspepsia [Unknown]
  - Inappropriate schedule of product administration [Unknown]
  - Constipation [Unknown]

NARRATIVE: CASE EVENT DATE: 20230201
